FAERS Safety Report 19151249 (Version 1)
Quarter: 2021Q2

REPORT INFORMATION
  Report Type: Spontaneous
  Country: US (occurrence: US)
  Receive Date: 20210419
  Receipt Date: 20210419
  Transmission Date: 20210717
  Serious: No
  Sender: FDA-Public Use
  Company Number: US-NEUROCRINE BIOSCIENCES INC.-2021NBI01656

PATIENT

DRUGS (2)
  1. CARBIDOPA/LEVODOPA [Concomitant]
     Active Substance: CARBIDOPA\LEVODOPA
     Dosage: UNK
     Route: 065
  2. ONGENTYS [Suspect]
     Active Substance: OPICAPONE
     Indication: PARKINSON^S DISEASE
     Dosage: UNK QD
     Route: 048

REACTIONS (7)
  - Flatulence [Unknown]
  - Headache [Unknown]
  - Abdominal distension [Unknown]
  - Diarrhoea [Unknown]
  - Tremor [Unknown]
  - Insomnia [Unknown]
  - Drug ineffective [Unknown]
